FAERS Safety Report 5217647-5 (Version None)
Quarter: 2006Q4

REPORT INFORMATION
  Report Type: 
  Country: None (occurrence: None)
  Receive Date: 20061130
  Receipt Date: 20060614
  Transmission Date: 20070319
  Serious: Yes (Other)
  Sender: FDA-Public Use
  Company Number: US200512003922

PATIENT
  Age: 36 Year
  Sex: Male
  Weight: 88 kg

DRUGS (15)
  1. ZYPREXA [Suspect]
     Dosage: SEE IMAGE
     Route: 048
     Dates: start: 20010330, end: 20010801
  2. ZYPREXA [Suspect]
     Dosage: SEE IMAGE
     Route: 048
     Dates: start: 20050413, end: 20050829
  3. ZYPREXA [Suspect]
     Dosage: SEE IMAGE
     Route: 048
     Dates: start: 20050730, end: 20050829
  4. ZYPREXA [Suspect]
     Dosage: SEE IMAGE
     Route: 048
     Dates: start: 20050413, end: 20051027
  5. ZYPREXA [Suspect]
     Dosage: SEE IMAGE
     Route: 048
     Dates: start: 20051027, end: 20051110
  6. ZYPREXA [Suspect]
     Dosage: SEE IMAGE
     Route: 048
     Dates: start: 20010801
  7. ZYPREXA ZYDIS [Suspect]
     Dosage: 10 MG
     Dates: start: 20050308
  8. RISPERDAL [Concomitant]
  9. HALOPERIDOL [Concomitant]
  10. TRAZODONE HCL [Concomitant]
  11. TRIAZOLAM [Concomitant]
  12. CORTICOSTEROID NOS (CORTICOSTEROID NOS) [Concomitant]
  13. MEVACOR [Concomitant]
  14. SEROQUEL [Concomitant]
  15. LORAZEPAM [Concomitant]

REACTIONS (3)
  - DIABETES MELLITUS NON-INSULIN-DEPENDENT [None]
  - HYPERLIPIDAEMIA [None]
  - WEIGHT INCREASED [None]
